FAERS Safety Report 21301974 (Version 3)
Quarter: 2022Q4

REPORT INFORMATION
  Report Type: Spontaneous
  Country: JP (occurrence: JP)
  Receive Date: 20220907
  Receipt Date: 20221005
  Transmission Date: 20230112
  Serious: Yes (Hospitalization, Other)
  Sender: FDA-Public Use
  Company Number: JP-GSKNCCC-Case-01565423_AE-61863

PATIENT

DRUGS (12)
  1. LAMICTAL [Suspect]
     Active Substance: LAMOTRIGINE
     Indication: Epilepsy
     Dosage: 50 MG
     Route: 048
  2. LAMICTAL [Suspect]
     Active Substance: LAMOTRIGINE
     Dosage: 60 MG
     Route: 048
  3. LAMICTAL [Suspect]
     Active Substance: LAMOTRIGINE
     Dosage: 70 MG
     Route: 048
  4. VALPROATE SODIUM [Concomitant]
     Active Substance: VALPROATE SODIUM
     Indication: Epilepsy
     Dosage: UNK
  5. LEVOCARNITINE HYDROCHLORIDE [Concomitant]
     Active Substance: LEVOCARNITINE HYDROCHLORIDE
     Indication: Epilepsy
     Dosage: UNK
  6. TOPIRAMATE [Concomitant]
     Active Substance: TOPIRAMATE
     Indication: Epilepsy
     Dosage: UNK
  7. FYCOMPA [Concomitant]
     Active Substance: PERAMPANEL
     Indication: Epilepsy
     Dosage: UNK
  8. E KEPPRA DRY SYRUP [Concomitant]
     Indication: Epilepsy
     Dosage: UNK
  9. PRANLUKAST [Concomitant]
     Active Substance: PRANLUKAST
     Dosage: UNK
  10. AMBROXOL HYDROCHLORIDE [Concomitant]
     Active Substance: AMBROXOL HYDROCHLORIDE
     Dosage: UNK
  11. CARBOCYSTEINE [Concomitant]
     Active Substance: CARBOCYSTEINE
     Dosage: UNK
  12. CLARITHROMYCIN [Concomitant]
     Active Substance: CLARITHROMYCIN
     Dosage: UNK

REACTIONS (4)
  - Encephalopathy [Unknown]
  - Drug titration error [Unknown]
  - Prescribed overdose [Unknown]
  - Off label use [Unknown]
